FAERS Safety Report 25519214 (Version 2)
Quarter: 2025Q3

REPORT INFORMATION
  Report Type: Spontaneous
  Country: US (occurrence: US)
  Receive Date: 20250704
  Receipt Date: 20250724
  Transmission Date: 20251020
  Serious: Yes (Hospitalization, Other)
  Sender: MERCK SHARP & DOHME LLC
  Company Number: US-009507513-2300933

PATIENT
  Age: 59 Year
  Sex: Male

DRUGS (2)
  1. BELZUTIFAN [Suspect]
     Active Substance: BELZUTIFAN
     Indication: Renal cancer
     Route: 048
  2. CABOMETYX [Suspect]
     Active Substance: CABOZANTINIB S-MALATE
     Indication: Renal cancer
     Dates: start: 20250321

REACTIONS (9)
  - Radiotherapy [Unknown]
  - Malignant neoplasm progression [Unknown]
  - General physical health deterioration [Unknown]
  - Alopecia [Not Recovered/Not Resolved]
  - Taste disorder [Not Recovered/Not Resolved]
  - Nausea [Recovered/Resolved]
  - Dysphonia [Unknown]
  - Fatigue [Unknown]
  - Gingival disorder [Unknown]
